FAERS Safety Report 15589335 (Version 1)
Quarter: 2018Q4

REPORT INFORMATION
  Report Type: Spontaneous
  Country: CA (occurrence: CA)
  Receive Date: 20181106
  Receipt Date: 20181106
  Transmission Date: 20190205
  Serious: Yes (Other)
  Sender: FDA-Public Use
  Company Number: CA-CONCORDIA PHARMACEUTICALS INC.-GSH201811-003849

PATIENT
  Age: 39 Year
  Sex: Female

DRUGS (6)
  1. METHOTREXATE. [Suspect]
     Active Substance: METHOTREXATE
     Route: 058
  2. PLAQUENIL [Suspect]
     Active Substance: HYDROXYCHLOROQUINE SULFATE
     Route: 065
     Dates: end: 201806
  3. SULFASALAZINE. [Suspect]
     Active Substance: SULFASALAZINE
     Route: 065
  4. METHOTREXATE. [Suspect]
     Active Substance: METHOTREXATE
     Route: 048
  5. SULFASALAZINE. [Suspect]
     Active Substance: SULFASALAZINE
     Indication: PRODUCT USED FOR UNKNOWN INDICATION
     Route: 065
  6. SIMPONI [Suspect]
     Active Substance: GOLIMUMAB
     Route: 065
     Dates: end: 20181010

REACTIONS (13)
  - Disability [Unknown]
  - Joint swelling [Unknown]
  - Blister [Unknown]
  - Nausea [Unknown]
  - Visual impairment [Unknown]
  - Quality of life decreased [Unknown]
  - Fatigue [Unknown]
  - Rheumatoid arthritis [Unknown]
  - Vomiting [Unknown]
  - Skin discolouration [Unknown]
  - Arthralgia [Unknown]
  - Rheumatoid factor positive [Unknown]
  - Product dose omission [Unknown]

NARRATIVE: CASE EVENT DATE: 20161031
